FAERS Safety Report 7573503-9 (Version None)
Quarter: 2011Q2

REPORT INFORMATION
  Report Type: 
  Country: None (occurrence: None)
  Receive Date: 20110627
  Receipt Date: 20110616
  Transmission Date: 20111010
  Serious: Yes (Hospitalization)
  Sender: FDA-Public Use
  Company Number: US-AMGEN-USASP2011025858

PATIENT
  Age: 59 Year
  Sex: Male
  Weight: 81.633 kg

DRUGS (3)
  1. ENBREL [Suspect]
     Indication: RHEUMATOID ARTHRITIS
     Dosage: 50 MG, QWK
     Route: 058
     Dates: start: 20071031
  2. ENBREL [Suspect]
     Indication: ANKYLOSING SPONDYLITIS
  3. HYDROCODONE                        /00060002/ [Concomitant]

REACTIONS (10)
  - CHEST PAIN [None]
  - SCAB [None]
  - IMPAIRED HEALING [None]
  - CORONARY ARTERY OCCLUSION [None]
  - DYSPNOEA [None]
  - ANXIETY [None]
  - BACK PAIN [None]
  - ANGINA UNSTABLE [None]
  - THERAPEUTIC RESPONSE DECREASED [None]
  - ANAEMIA [None]
